FAERS Safety Report 11554910 (Version 1)
Quarter: 2015Q3

REPORT INFORMATION
  Report Type: Spontaneous
  Country: US (occurrence: US)
  Receive Date: 20150903
  Receipt Date: 20150903
  Transmission Date: 20151125
  Serious: No
  Sender: FDA-Public Use
  Company Number: US-ELI_LILLY_AND_COMPANY-US201009004020

PATIENT
  Sex: Female

DRUGS (4)
  1. HUMALOG [Suspect]
     Active Substance: INSULIN LISPRO
     Dosage: 8 U, EACH MORNING
  2. HUMALOG [Suspect]
     Active Substance: INSULIN LISPRO
     Dosage: 10 U, DAILY (1/D)
  3. LANTUS [Concomitant]
     Active Substance: INSULIN GLARGINE
     Dosage: 15 U, 2/D
  4. HUMALOG [Suspect]
     Active Substance: INSULIN LISPRO
     Dosage: 13 U, EACH EVENING

REACTIONS (1)
  - Eye disorder [Unknown]
